FAERS Safety Report 10613224 (Version 1)
Quarter: 2014Q4

REPORT INFORMATION
  Report Type: Spontaneous
  Country: FR (occurrence: FR)
  Receive Date: 20141128
  Receipt Date: 20141128
  Transmission Date: 20150529
  Serious: Yes (Life-Threatening)
  Sender: FDA-Public Use
  Company Number: FR-BRISTOL-MYERS SQUIBB COMPANY-21622915

PATIENT
  Age: 42 Year
  Sex: Male
  Weight: 65 kg

DRUGS (2)
  1. YERVOY [Suspect]
     Active Substance: IPILIMUMAB
     Dosage: 2ND INJECTION ON 07MAY14, 3RD ON 28MAY14 AND 4TH ON 18JUN14?5 MG/ML SOLUTION FOR INFUSION
     Route: 042
     Dates: start: 20140416
  2. LEVOTHYROX [Concomitant]
     Active Substance: LEVOTHYROXINE
     Route: 048

REACTIONS (1)
  - Interstitial lung disease [Recovering/Resolving]

NARRATIVE: CASE EVENT DATE: 20140706
